FAERS Safety Report 5169023-1 (Version None)
Quarter: 2006Q4

REPORT INFORMATION
  Report Type: 
  Country: None (occurrence: None)
  Receive Date: 20061211
  Receipt Date: 20061201
  Transmission Date: 20070319
  Serious: Yes (Hospitalization)
  Sender: FDA-Public Use
  Company Number: JP-JNJFOC-20061201771

PATIENT
  Age: 69 Year
  Sex: Female

DRUGS (2)
  1. REMICADE [Suspect]
  2. REMICADE [Suspect]
     Indication: RHEUMATOID ARTHRITIS

REACTIONS (1)
  - PNEUMOCYSTIS JIROVECI PNEUMONIA [None]
